FAERS Safety Report 4330185-7 (Version None)
Quarter: 2004Q2

REPORT INFORMATION
  Report Type: 
  Country: None (occurrence: None)
  Receive Date: 20040401
  Receipt Date: 20040326
  Transmission Date: 20050107
  Serious: Yes (Other)
  Sender: FDA-Public Use
  Company Number: 04-03-0455

PATIENT
  Age: 63 Year
  Sex: Male

DRUGS (3)
  1. ALBUTEROL SULFATE [Suspect]
     Dosage: 250MCG INHALATION
  2. ALBUTEROL SULFATE [Suspect]
     Indication: DRUG USE FOR UNKNOWN INDICATION
     Dosage: 5MCG/KG/MIN INHALATION
  3. AMINOPHYLLINE [Concomitant]

REACTIONS (2)
  - METABOLIC ACIDOSIS [None]
  - RESPIRATORY ACIDOSIS [None]
